FAERS Safety Report 7276318-4 (Version None)
Quarter: 2011Q1

REPORT INFORMATION
  Report Type: 
  Country: None (occurrence: None)
  Receive Date: 20110202
  Receipt Date: 20110202
  Transmission Date: 20110831
  Serious: Yes (Other)
  Sender: FDA-Public Use
  Company Number: None

PATIENT
  Age: 49 Year
  Sex: Female

DRUGS (3)
  1. INTERFERON [Suspect]
  2. REBETOL [Suspect]
  3. REBIVIRON [Concomitant]

REACTIONS (4)
  - CRYING [None]
  - INJECTION SITE DISCOLOURATION [None]
  - COUGH [None]
  - SUICIDAL IDEATION [None]
